FAERS Safety Report 16371155 (Version 2)
Quarter: 2019Q3

REPORT INFORMATION
  Report Type: Report from Study
  Country: KR (occurrence: KR)
  Receive Date: 20190530
  Receipt Date: 20190709
  Transmission Date: 20191004
  Serious: Yes (Death, Hospitalization)
  Sender: FDA-Public Use
  Company Number: KR-CELGENEUS-KOR-20190509096

PATIENT
  Age: 68 Year
  Sex: Female

DRUGS (4)
  1. DEXAMETHASONE. [Suspect]
     Active Substance: DEXAMETHASONE
     Indication: PLASMA CELL MYELOMA
     Dosage: 40 MILLIGRAM
     Route: 065
  2. NICARDIPINE HCL [Concomitant]
     Active Substance: NICARDIPINE HYDROCHLORIDE
     Indication: TACHYCARDIA
     Dosage: 4 MILLIGRAM
     Route: 041
     Dates: start: 20190510, end: 20190510
  3. POMALYST [Suspect]
     Active Substance: POMALIDOMIDE
     Indication: PLASMA CELL MYELOMA
     Dosage: 3 MILLIGRAM
     Route: 048
     Dates: start: 20190425, end: 20190507
  4. NICARDIPINE HCL [Concomitant]
     Active Substance: NICARDIPINE HYDROCHLORIDE
     Dosage: 4 MILLIGRAM
     Route: 041
     Dates: start: 20190511, end: 20190511

REACTIONS (4)
  - Pyrexia [Not Recovered/Not Resolved]
  - General physical health deterioration [Not Recovered/Not Resolved]
  - Cardiac amyloidosis [Not Recovered/Not Resolved]
  - Pulmonary alveolar haemorrhage [Fatal]

NARRATIVE: CASE EVENT DATE: 20190508
